FAERS Safety Report 5014076-4 (Version None)
Quarter: 2006Q2

REPORT INFORMATION
  Report Type: 
  Country: None (occurrence: None)
  Receive Date: 20060525
  Receipt Date: 20060502
  Transmission Date: 20061013
  Serious: Yes (Other)
  Sender: FDA-Public Use
  Company Number: DE200605001232

PATIENT
  Age: 70 Year
  Sex: Female
  Weight: 45 kg

DRUGS (4)
  1. FORTEO [Suspect]
     Indication: OSTEOPOROSIS
     Dosage: 20 UG, DAILY (1/D) SUBCUTANEOUS
     Route: 058
     Dates: start: 20050526, end: 20051221
  2. FORTEO [Concomitant]
  3. PANGOL (AMYLASE, BRINASE, LIPASE, PANCREATIN) [Concomitant]
  4. BISOPROLOL [Concomitant]

REACTIONS (4)
  - BILIARY DYSKINESIA [None]
  - CIRCULATORY COLLAPSE [None]
  - GASTRITIS [None]
  - NAUSEA [None]
